FAERS Safety Report 23849605 (Version 1)
Quarter: 2024Q2

REPORT INFORMATION
  Report Type: Spontaneous
  Country: CA (occurrence: None)
  Receive Date: 20240511
  Receipt Date: 20240511
  Transmission Date: 20240716
  Serious: Yes (Other)
  Sender: FDA-Public Use
  Company Number: None

PATIENT
  Age: 59 Year
  Sex: Female
  Weight: 54 kg

DRUGS (1)
  1. MONTELUKAST [Suspect]
     Active Substance: MONTELUKAST SODIUM
     Indication: Asthma
     Dosage: 30 TABLETS DAILY ORAL
     Route: 048
     Dates: start: 20240402, end: 20240502

REACTIONS (1)
  - Anxiety [None]

NARRATIVE: CASE EVENT DATE: 20240511
